FAERS Safety Report 9819321 (Version 1)
Quarter: 2014Q1

REPORT INFORMATION
  Report Type: Report from Study
  Country: US (occurrence: US)
  Receive Date: 20140115
  Receipt Date: 20140115
  Transmission Date: 20141002
  Serious: Yes (Hospitalization, Other)
  Sender: FDA-Public Use
  Company Number: US-TEVA-455872USA

PATIENT
  Age: 73 Year
  Sex: Male
  Weight: 101.8 kg

DRUGS (2)
  1. DAUNORUBICIN [Suspect]
     Indication: ACUTE MYELOID LEUKAEMIA
     Dosage: TOTAL DOSE OF 390 MG ADMINISTERED IV OVER 3 DAYS
     Route: 042
     Dates: start: 20120531, end: 20120603
  2. CYTARABINE [Suspect]
     Indication: ACUTE MYELOID LEUKAEMIA
     Dosage: TOTAL DOSE OF 1540 MG GIVEN IV OVER 7 DAYS
     Route: 042
     Dates: start: 20120531, end: 20120607

REACTIONS (1)
  - Pulmonary oedema [Recovered/Resolved]
